FAERS Safety Report 5007738-6 (Version None)
Quarter: 2006Q2

REPORT INFORMATION
  Report Type: 
  Country: None (occurrence: None)
  Receive Date: 20060522
  Receipt Date: 20060425
  Transmission Date: 20061013
  Serious: Yes (Other)
  Sender: FDA-Public Use
  Company Number: PHNU2006DE01770

PATIENT
  Sex: Female
  Weight: 67 kg

DRUGS (2)
  1. ELIDEL [Suspect]
     Indication: PSORIASIS
     Route: 061
  2. PROTOPIC [Suspect]
     Indication: PSORIASIS

REACTIONS (4)
  - HYPOAESTHESIA [None]
  - MUSCLE SPASMS [None]
  - PAIN IN EXTREMITY [None]
  - PARAESTHESIA [None]
